FAERS Safety Report 10025917 (Version 1)
Quarter: 2014Q1

REPORT INFORMATION
  Report Type: Spontaneous
  Country: RO (occurrence: None)
  Receive Date: 20140314
  Receipt Date: 20140314
  Transmission Date: 20141002
  Serious: Yes (Other)
  Sender: FDA-Public Use
  Company Number: AUR-APL-2014-02101

PATIENT
  Age: 55 Year
  Sex: 0

DRUGS (2)
  1. RIBAVIRIN (RIBAVIRIN) [Suspect]
     Indication: HEPATITIS C
     Route: 048
  2. PEG-INTRON [Suspect]
     Indication: HEPATITIS C
     Route: 058

REACTIONS (9)
  - Pallor [None]
  - Ocular icterus [None]
  - Haemangioma [None]
  - Sinus tachycardia [None]
  - Hepatomegaly [None]
  - Splenomegaly [None]
  - Cholestasis [None]
  - Inflammation [None]
  - Viraemia [None]
